FAERS Safety Report 9103289 (Version 1)
Quarter: 2013Q1

REPORT INFORMATION
  Report Type: Spontaneous
  Country: US (occurrence: US)
  Receive Date: 20130219
  Receipt Date: 20130219
  Transmission Date: 20140127
  Serious: Yes (Other)
  Sender: FDA-Public Use
  Company Number: US-AMGEN-USASP2013010787

PATIENT
  Age: 70 Year
  Sex: Female

DRUGS (2)
  1. ENBREL [Suspect]
     Indication: RHEUMATOID ARTHRITIS
     Dosage: 50 MG, QWK
     Dates: start: 19990301, end: 20130108
  2. METHOTREXATE [Concomitant]
     Dosage: 4 - 2.5 MILLIGRAM TABS WEEKLY
     Dates: start: 201206, end: 20130108

REACTIONS (8)
  - Brain neoplasm [Not Recovered/Not Resolved]
  - Sinus congestion [Not Recovered/Not Resolved]
  - Deafness [Not Recovered/Not Resolved]
  - Joint swelling [Not Recovered/Not Resolved]
  - Arthralgia [Not Recovered/Not Resolved]
  - Gait disturbance [Not Recovered/Not Resolved]
  - Middle ear effusion [Not Recovered/Not Resolved]
  - Herpes zoster [Recovered/Resolved]
